FAERS Safety Report 4662241-8 (Version None)
Quarter: 2005Q2

REPORT INFORMATION
  Report Type: 
  Country: None (occurrence: None)
  Receive Date: 20050512
  Receipt Date: 20050428
  Transmission Date: 20051028
  Serious: Yes (Other)
  Sender: FDA-Public Use
  Company Number: MC200500379

PATIENT
  Age: 81 Year
  Sex: Female
  Weight: 79 kg

DRUGS (4)
  1. ANGIOMAX [Suspect]
     Indication: MITRAL VALVE REPLACEMENT
     Dosage: SEE IMAGE
     Route: 040
     Dates: start: 20050421, end: 20050421
  2. ANGIOMAX [Suspect]
     Indication: MITRAL VALVE REPLACEMENT
     Dosage: SEE IMAGE
     Route: 040
     Dates: start: 20050421, end: 20050421
  3. ANGIOMAX [Suspect]
     Indication: MITRAL VALVE REPLACEMENT
     Dosage: SEE IMAGE
     Route: 040
     Dates: start: 20050421, end: 20050421
  4. ARIXTRA [Suspect]

REACTIONS (3)
  - OPERATIVE HAEMORRHAGE [None]
  - OVERDOSE [None]
  - POST PROCEDURAL HAEMORRHAGE [None]
